FAERS Safety Report 23654361 (Version 1)
Quarter: 2024Q1

REPORT INFORMATION
  Report Type: Report from Study
  Country: US (occurrence: US)
  Receive Date: 20240320
  Receipt Date: 20240320
  Transmission Date: 20240409
  Serious: Yes (Hospitalization, Other)
  Sender: FDA-Public Use
  Company Number: US-ABBVIE-5683333

PATIENT
  Age: 65 Year
  Sex: Male

DRUGS (1)
  1. IMBRUVICA [Suspect]
     Active Substance: IBRUTINIB
     Indication: Product used for unknown indication
     Route: 048
     Dates: start: 20201003

REACTIONS (3)
  - Pneumonia [Recovering/Resolving]
  - Atrial fibrillation [Recovering/Resolving]
  - Pneumothorax [Unknown]

NARRATIVE: CASE EVENT DATE: 20240213
